FAERS Safety Report 5264737-7 (Version None)
Quarter: 2007Q1

REPORT INFORMATION
  Report Type: 
  Country: None (occurrence: None)
  Receive Date: 20061117
  Receipt Date: 20051212
  Transmission Date: 20070707
  Serious: Yes (Life-Threatening, Hospitalization)
  Sender: FDA-Public Use
  Company Number: US-JNJFOC-20051002200

PATIENT
  Age: 84 Year
  Sex: Male

DRUGS (2)
  1. LEVAQUIN [Suspect]
     Indication: CELLULITIS
     Dosage: 750 MG, ORAL
     Route: 048
     Dates: start: 20050901, end: 20050901
  2. BETA BLOCKER (BETA BLOCKING AGENTS) [Concomitant]

REACTIONS (1)
  - CARDIAC ARREST [None]
